FAERS Safety Report 19862521 (Version 1)
Quarter: 2021Q3

REPORT INFORMATION
  Report Type: Spontaneous
  Country: ES (occurrence: ES)
  Receive Date: 20210921
  Receipt Date: 20210921
  Transmission Date: 20211014
  Serious: Yes (Other)
  Sender: FDA-Public Use
  Company Number: ES-MYLANLABS-2021M1063273

PATIENT
  Age: 46 Year
  Sex: Male

DRUGS (3)
  1. TIMOGLOBULINA                      /00575401/ [Suspect]
     Active Substance: THYMOCYTE IMMUNE GLOBULIN NOS
     Indication: PROPHYLAXIS AGAINST GRAFT VERSUS HOST DISEASE
     Dosage: 75 MILLIGRAM, Q2D
     Route: 042
     Dates: start: 20210311, end: 20210316
  2. PREDNISONE. [Suspect]
     Active Substance: PREDNISONE
     Indication: PROPHYLAXIS AGAINST GRAFT VERSUS HOST DISEASE
     Dosage: 20 MILLIGRAM, QD
     Route: 042
     Dates: start: 20210311, end: 20210316
  3. METILPREDNISOLONA                  /00049601/ [Suspect]
     Active Substance: METHYLPREDNISOLONE
     Indication: PROPHYLAXIS AGAINST GRAFT VERSUS HOST DISEASE
     Dosage: 100 MILLIGRAM, QD, DOWN UPTO 40 MG/DAY
     Route: 042
     Dates: start: 20210311, end: 20210316

REACTIONS (1)
  - Pancreatitis [Recovered/Resolved]

NARRATIVE: CASE EVENT DATE: 20210415
